FAERS Safety Report 6633011-6 (Version None)
Quarter: 2010Q1

REPORT INFORMATION
  Report Type: 
  Country: None (occurrence: None)
  Receive Date: 20100312
  Receipt Date: 20100303
  Transmission Date: 20100710
  Serious: Yes (Other)
  Sender: FDA-Public Use
  Company Number: US-SANOFI-AVENTIS-2010SA013276

PATIENT
  Age: 67 Year
  Sex: Female
  Weight: 91 kg

DRUGS (22)
  1. FUROSEMIDE [Suspect]
     Route: 065
     Dates: start: 20090301, end: 20090917
  2. FUROSEMIDE [Suspect]
     Route: 065
     Dates: start: 20090918
  3. INVESTIGATIONAL DRUG [Suspect]
     Indication: MULTIPLE MYELOMA
     Dosage: 147 MG EVERY OTHER DAY, 3 WEEKS OUT OF 4
     Route: 048
     Dates: start: 20090922, end: 20090928
  4. METFORMIN HCL [Concomitant]
     Dates: start: 20060101
  5. ZOLOFT [Concomitant]
     Dates: start: 20060101
  6. SITAGLIPTIN PHOSPHATE [Concomitant]
     Dates: start: 20090901
  7. PRILOSEC [Concomitant]
     Dates: start: 20040101
  8. MIRAPEX ^PHARMACIA + UPJOHN^ [Concomitant]
     Dates: start: 20070101
  9. CALCIUM WITH VITAMIN D [Concomitant]
     Dates: start: 20050101
  10. SIMVASTATIN [Concomitant]
     Dates: start: 20060101
  11. MECLOZINE HYDROCHLORIDE [Concomitant]
     Dates: start: 19990101
  12. FENOFIBRATE [Concomitant]
     Dates: start: 20060613
  13. COREG [Concomitant]
     Dates: start: 20080101
  14. COMPAZINE [Concomitant]
     Dates: start: 20080907
  15. VICODIN [Concomitant]
     Dates: start: 20081014
  16. LORAZEPAM [Concomitant]
     Dates: start: 20070619
  17. GABAPENTIN [Concomitant]
     Dates: start: 20070101
  18. INSULIN HUMAN [Concomitant]
     Dates: start: 20080930
  19. POTASSIUM CHLORIDE [Concomitant]
     Dates: start: 20090303
  20. LOPERAMIDE HYDROCHLORIDE [Concomitant]
     Dates: start: 20090922
  21. LEVAQUIN [Concomitant]
     Dates: start: 20090922, end: 20090928
  22. MAGNESIUM [Concomitant]
     Dates: start: 20090917

REACTIONS (1)
  - ELECTROCARDIOGRAM QT PROLONGED [None]
